FAERS Safety Report 10177561 (Version 2)
Quarter: 2014Q2

REPORT INFORMATION
  Report Type: Spontaneous
  Country: US (occurrence: US)
  Receive Date: 20140516
  Receipt Date: 20140530
  Transmission Date: 20141212
  Serious: No
  Sender: FDA-Public Use
  Company Number: US-PFIZER INC-2014131038

PATIENT
  Sex: Female

DRUGS (3)
  1. LYRICA [Suspect]
     Indication: HERPES ZOSTER
     Dosage: 50 MG, 3X/DAY
     Route: 048
  2. LYRICA [Suspect]
     Dosage: 2 TABLETS A DAY FOR 5 DAYS THEN 1 TABLET A DAY FOR 3 DAYS THEN STOPPED)
  3. LYRICA [Suspect]
     Dosage: UNK

REACTIONS (11)
  - Drug withdrawal syndrome [Unknown]
  - Insomnia [Unknown]
  - Depression [Unknown]
  - Dyspnoea [Unknown]
  - Nausea [Unknown]
  - Weight decreased [Unknown]
  - Anxiety [Unknown]
  - Hyperhidrosis [Unknown]
  - Hot flush [Unknown]
  - Diarrhoea [Unknown]
  - Malaise [Unknown]
